FAERS Safety Report 23193443 (Version 1)
Quarter: 2023Q4

REPORT INFORMATION
  Report Type: Report from Study
  Country: US (occurrence: US)
  Receive Date: 20231116
  Receipt Date: 20231116
  Transmission Date: 20240109
  Serious: Yes (Other)
  Sender: FDA-Public Use
  Company Number: US-PFIZER INC-202300356606

PATIENT
  Age: 42 Month

DRUGS (2)
  1. BUSULFAN [Suspect]
     Active Substance: BUSULFAN
     Indication: Wiskott-Aldrich syndrome
     Dosage: TARGET AUC OF 70-80 MG X H/L
  2. FLUDARABINE PHOSPHATE [Concomitant]
     Active Substance: FLUDARABINE PHOSPHATE
     Indication: Wiskott-Aldrich syndrome
     Dosage: 120 MG/M2

REACTIONS (1)
  - Rhabdomyosarcoma [Unknown]
